FAERS Safety Report 12684850 (Version 2)
Quarter: 2016Q4

REPORT INFORMATION
  Report Type: Spontaneous
  Country: CA (occurrence: CA)
  Receive Date: 20160825
  Receipt Date: 20161005
  Transmission Date: 20170207
  Serious: Yes (Other)
  Sender: FDA-Public Use
  Company Number: CA-GLAXOSMITHKLINE-CA2016GSK121969

PATIENT
  Age: 4 Year
  Sex: Male

DRUGS (20)
  1. ADVAIR HFA [Suspect]
     Active Substance: FLUTICASONE PROPIONATE\SALMETEROL XINAFOATE
     Dosage: 2 PUFF(S), UNK
     Dates: start: 201009
  2. ADVAIR HFA [Suspect]
     Active Substance: FLUTICASONE PROPIONATE\SALMETEROL XINAFOATE
     Dosage: 2 PUFF(S), BID
     Dates: start: 201009
  3. ADVAIR HFA [Suspect]
     Active Substance: FLUTICASONE PROPIONATE\SALMETEROL XINAFOATE
     Dosage: 2 PUFF(S), BID
     Dates: start: 20101029
  4. ALVESCO [Suspect]
     Active Substance: CICLESONIDE
     Dosage: 1 PUFF(S), Z
     Dates: start: 201402
  5. ADVAIR HFA [Suspect]
     Active Substance: FLUTICASONE PROPIONATE\SALMETEROL XINAFOATE
     Dosage: 2 PUFF(S), BID
     Dates: start: 201007
  6. ALVESCO [Suspect]
     Active Substance: CICLESONIDE
     Dosage: 1 PUFF(S), TID
     Dates: start: 201111
  7. FLOVENT HFA [Suspect]
     Active Substance: FLUTICASONE PROPIONATE
     Indication: PRODUCT USED FOR UNKNOWN INDICATION
     Dosage: UNK
     Route: 055
     Dates: start: 201001, end: 201004
  8. ADVAIR HFA [Suspect]
     Active Substance: FLUTICASONE PROPIONATE\SALMETEROL XINAFOATE
     Dosage: 2 PUFF(S), BID
     Dates: start: 201007
  9. ADVAIR HFA [Suspect]
     Active Substance: FLUTICASONE PROPIONATE\SALMETEROL XINAFOATE
     Dosage: 2 PUFF(S), UNK
     Dates: start: 201007
  10. ALVESCO [Suspect]
     Active Substance: CICLESONIDE
     Indication: PRODUCT USED FOR UNKNOWN INDICATION
     Dosage: UNK
     Dates: start: 201110
  11. ADVAIR HFA [Suspect]
     Active Substance: FLUTICASONE PROPIONATE\SALMETEROL XINAFOATE
     Dosage: 2 PUFF(S), BID
     Dates: start: 20110401
  12. FLOVENT HFA [Suspect]
     Active Substance: FLUTICASONE PROPIONATE
     Dosage: 2 PUFF(S), BID
     Dates: start: 201004
  13. SINGULAIR [Suspect]
     Active Substance: MONTELUKAST SODIUM
     Indication: COUGH
     Dosage: UNK
     Dates: start: 201001, end: 201107
  14. ALVESCO [Suspect]
     Active Substance: CICLESONIDE
     Dosage: UNK UNK, PRN
     Dates: start: 201505
  15. ADVAIR HFA [Suspect]
     Active Substance: FLUTICASONE PROPIONATE\SALMETEROL XINAFOATE
     Dosage: 2 PUFF(S), BID
     Dates: start: 20101105
  16. ADVAIR HFA [Suspect]
     Active Substance: FLUTICASONE PROPIONATE\SALMETEROL XINAFOATE
     Indication: COUGH
     Dosage: UNK
     Dates: start: 201004, end: 201104
  17. ALVESCO [Suspect]
     Active Substance: CICLESONIDE
     Dosage: UNK, PRN
     Dates: start: 201304
  18. ALVESCO [Suspect]
     Active Substance: CICLESONIDE
     Dosage: 1 PUFF(S), PRN
     Dates: start: 201405
  19. ALVESCO [Suspect]
     Active Substance: CICLESONIDE
     Dosage: 1 PUFF(S), BID
     Dates: start: 201111
  20. ALVESCO [Suspect]
     Active Substance: CICLESONIDE
     Dosage: 1 PUFF(S), QD
     Dates: start: 201111

REACTIONS (11)
  - Condition aggravated [Unknown]
  - Pain in extremity [Unknown]
  - Prescribed overdose [Unknown]
  - Cardiovascular disorder [Not Recovered/Not Resolved]
  - Influenza [Unknown]
  - Upper respiratory tract infection [Unknown]
  - Pneumonia [Unknown]
  - Arthralgia [Unknown]
  - Cough [Unknown]
  - Off label use [Unknown]
  - Intentional product misuse [Unknown]

NARRATIVE: CASE EVENT DATE: 201001
